FAERS Safety Report 6302609-7 (Version None)
Quarter: 2009Q3

REPORT INFORMATION
  Report Type: 
  Country: None (occurrence: None)
  Receive Date: 20090810
  Receipt Date: 20090709
  Transmission Date: 20100115
  Serious: No
  Sender: FDA-Public Use
  Company Number: US-BAYER-200926402NA

PATIENT
  Age: 31 Year
  Sex: Female

DRUGS (2)
  1. MIRENA [Suspect]
     Indication: DRUG USE FOR UNKNOWN INDICATION
     Dosage: CONTINOUS
     Route: 015
  2. MIRENA [Suspect]
     Dosage: CONTINOUS
     Route: 015

REACTIONS (1)
  - POST PROCEDURAL HAEMORRHAGE [None]
